FAERS Safety Report 7844063-X (Version None)
Quarter: 2011Q4

REPORT INFORMATION
  Report Type: 
  Country: None (occurrence: None)
  Receive Date: 20111025
  Receipt Date: 20111012
  Transmission Date: 20120403
  Serious: Yes (Other)
  Sender: FDA-Public Use
  Company Number: AU-ELI_LILLY_AND_COMPANY-AU201108002631

PATIENT
  Sex: Male
  Weight: 88 kg

DRUGS (3)
  1. FOLIC ACID [Concomitant]
     Dosage: 0.5 MG, QD
     Route: 048
  2. ALIMTA [Suspect]
     Indication: NON-SMALL CELL LUNG CANCER
     Dosage: UNK, UNKNOWN
     Route: 065
     Dates: start: 20100326
  3. VITAMIN B-12 [Concomitant]
     Dosage: 1 G, WEEKLY (1/W)
     Route: 030

REACTIONS (1)
  - VERTIGO POSITIONAL [None]
